FAERS Safety Report 8901239 (Version 1)
Quarter: 2012Q4

REPORT INFORMATION
  Report Type: Report from Study
  Country: JP (occurrence: JP)
  Receive Date: 20121109
  Receipt Date: 20121109
  Transmission Date: 20130627
  Serious: Yes (Other)
  Sender: FDA-Public Use
  Company Number: JP-VERTEX PHARMACEUTICAL INC.-2012-024251

PATIENT
  Age: 63 Year
  Sex: Male

DRUGS (9)
  1. VX-950 (TELAPREVIR) [Suspect]
     Indication: CHRONIC HEPATITIS C
     Dosage: 2250 mg, qd
     Route: 048
     Dates: start: 20120918, end: 20120924
  2. VX-950 (TELAPREVIR) [Suspect]
     Dosage: 1500 mg, qd
     Route: 048
     Dates: start: 20120925
  3. REBETOL [Suspect]
     Indication: CHRONIC HEPATITIS C
     Dosage: 1000 mg, qd
     Route: 048
     Dates: start: 20120918, end: 20120924
  4. REBETOL [Suspect]
     Dosage: 600 mg, qd
     Route: 048
     Dates: start: 20120925, end: 20121022
  5. REBETOL [Suspect]
     Dosage: 400 mg, qd
     Route: 048
     Dates: start: 20121023
  6. PEGINTRON                          /01543001/ [Suspect]
     Indication: CHRONIC HEPATITIS C
     Dosage: 1.5 ?g/kg, qw
     Route: 058
     Dates: start: 20120918
  7. FEBURIC [Concomitant]
     Dosage: 10 mg, qd
     Route: 048
  8. NAUZELIN [Concomitant]
     Dosage: 30 mg, qd
     Route: 048
     Dates: start: 20120918
  9. ZETIA [Concomitant]
     Dosage: 10 mg, qd
     Route: 048

REACTIONS (4)
  - White blood cell count decreased [Recovered/Resolved]
  - Blood creatinine increased [None]
  - Haemoglobin decreased [None]
  - Hyperuricaemia [None]
